FAERS Safety Report 22160281 (Version 1)
Quarter: 2023Q1

REPORT INFORMATION
  Report Type: Spontaneous
  Country: US (occurrence: US)
  Receive Date: 20230331
  Receipt Date: 20230331
  Transmission Date: 20230418
  Serious: No
  Sender: FDA-Public Use
  Company Number: US-BRISTOL-MYERS SQUIBB COMPANY-2023-045382

PATIENT
  Age: 83 Year
  Sex: Male
  Weight: 106 kg

DRUGS (1)
  1. REVLIMID [Suspect]
     Active Substance: LENALIDOMIDE
     Indication: Plasma cell myeloma
     Dosage: 1W, 1W OFF
     Route: 048

REACTIONS (2)
  - SARS-CoV-2 test positive [Recovering/Resolving]
  - Off label use [Unknown]
